FAERS Safety Report 8322437-0 (Version None)
Quarter: 2012Q2

REPORT INFORMATION
  Report Type: 
  Country: None (occurrence: None)
  Receive Date: 20120430
  Receipt Date: 20120417
  Transmission Date: 20120825
  Serious: Yes (Other)
  Sender: FDA-Public Use
  Company Number: AU-ROCHE-1060533

PATIENT
  Sex: Female

DRUGS (1)
  1. ACTEMRA [Suspect]
     Indication: RHEUMATOID ARTHRITIS
     Dates: start: 20111110

REACTIONS (4)
  - DISTURBANCE IN ATTENTION [None]
  - FLUSHING [None]
  - HEADACHE [None]
  - ACTIVITIES OF DAILY LIVING IMPAIRED [None]
